FAERS Safety Report 17703378 (Version 3)
Quarter: 2025Q2

REPORT INFORMATION
  Report Type: Spontaneous
  Country: US (occurrence: US)
  Receive Date: 20200424
  Receipt Date: 20250425
  Transmission Date: 20250716
  Serious: Yes (Other)
  Sender: AUROBINDO
  Company Number: US-AUROBINDO-AUR-APL-2020-019938

PATIENT
  Sex: Female

DRUGS (1)
  1. SULFAMETHOXAZOLE\TRIMETHOPRIM [Suspect]
     Active Substance: SULFAMETHOXAZOLE\TRIMETHOPRIM
     Indication: Product used for unknown indication
     Dosage: 1 DOSAGE FORM, TWO TIMES A DAY, FOR 10 DAYS
     Route: 065

REACTIONS (9)
  - Choking [Unknown]
  - Foreign body in throat [Unknown]
  - Dry mouth [Unknown]
  - Product use complaint [Unknown]
  - Product taste abnormal [Unknown]
  - Product solubility abnormal [Unknown]
  - Product quality issue [Unknown]
  - Product size issue [Unknown]
  - Wrong technique in product usage process [Unknown]
